FAERS Safety Report 9787907 (Version 2)
Quarter: 2014Q1

REPORT INFORMATION
  Report Type: Spontaneous
  Country: IT (occurrence: IT)
  Receive Date: 20131230
  Receipt Date: 20140219
  Transmission Date: 20141002
  Serious: Yes (Hospitalization)
  Sender: FDA-Public Use
  Company Number: IT-BAYER-2013-157066

PATIENT
  Age: 83 Year
  Sex: Male

DRUGS (4)
  1. CARDIOASPIRIN [Suspect]
     Indication: MYOCARDIAL INFARCTION
     Dosage: DAILY DOSE 100 MG
     Route: 048
     Dates: start: 20120101, end: 20131119
  2. PLAVIX [Suspect]
     Indication: MYOCARDIAL INFARCTION
     Dosage: DAILY DOSE 75 MG
     Route: 048
     Dates: start: 20120101, end: 20131119
  3. NORVASC [Concomitant]
     Dosage: UNK
     Dates: start: 20120101, end: 20131119
  4. ESAPENT [Concomitant]
     Dosage: UNK
     Dates: start: 20120101, end: 20131119

REACTIONS (5)
  - Rectal haemorrhage [Recovered/Resolved]
  - Nausea [Recovered/Resolved]
  - Asthenia [Recovered/Resolved]
  - Vertigo [Recovered/Resolved]
  - Melaena [Recovered/Resolved]
